FAERS Safety Report 25585143 (Version 1)
Quarter: 2025Q3

REPORT INFORMATION
  Report Type: Spontaneous
  Country: US (occurrence: US)
  Receive Date: 20250721
  Receipt Date: 20250721
  Transmission Date: 20251020
  Serious: Yes (Hospitalization, Other)
  Sender: AUROBINDO
  Company Number: US-AUROBINDO-AUR-APL-2025-037530

PATIENT
  Age: 2 Year
  Sex: Female

DRUGS (2)
  1. CEPHALEXIN [Suspect]
     Active Substance: CEPHALEXIN
     Indication: Pyelonephritis
     Route: 065
  2. VIGABATRIN [Suspect]
     Active Substance: VIGABATRIN
     Indication: Febrile convulsion
     Route: 065

REACTIONS (2)
  - Drug ineffective [Unknown]
  - Urinary tract infection [Unknown]
